FAERS Safety Report 22081257 (Version 2)
Quarter: 2023Q1

REPORT INFORMATION
  Report Type: Spontaneous
  Country: CA (occurrence: CA)
  Receive Date: 20230309
  Receipt Date: 20230322
  Transmission Date: 20230417
  Serious: Yes (Hospitalization)
  Sender: FDA-Public Use
  Company Number: CA-TEVA-2023-CA-2862306

PATIENT
  Age: 29 Year
  Sex: Male

DRUGS (14)
  1. ARIPIPRAZOLE [Suspect]
     Active Substance: ARIPIPRAZOLE
     Indication: Psychotic disorder
     Route: 048
  2. OLANZAPINE [Suspect]
     Active Substance: OLANZAPINE
     Indication: Psychotic disorder
     Dosage: 20 MILLIGRAM DAILY; ONCE DAILY
     Route: 065
  3. RISPERIDONE [Suspect]
     Active Substance: RISPERIDONE
     Indication: Psychotic disorder
     Route: 048
  4. LURASIDONE [Suspect]
     Active Substance: LURASIDONE
     Indication: Psychotic disorder
     Dosage: 80MG
     Route: 065
  5. LURASIDONE [Suspect]
     Active Substance: LURASIDONE
     Dosage: LATER, THE DOSE WAS INCREASED TO 160 MG
     Route: 065
  6. CLOZAPINE [Suspect]
     Active Substance: CLOZAPINE
     Indication: Psychotic disorder
     Dosage: INITIAL DOSE UNKNOWN. LATER, THE DOSE WAS GRADUALLY TITRATED TO 450MG DAILY
     Route: 065
  7. CLOZAPINE [Suspect]
     Active Substance: CLOZAPINE
     Dosage: 450 MILLIGRAM DAILY; ONCE DAILY
     Route: 065
  8. CLOZAPINE [Suspect]
     Active Substance: CLOZAPINE
     Dosage: 400 MILLIGRAM DAILY; ONCE DAILY
     Route: 065
  9. CLOZAPINE [Suspect]
     Active Substance: CLOZAPINE
     Dosage: 200 MILLIGRAM DAILY; ONCE DAILY
     Route: 065
  10. ZUCLOPENTHIXOL DECANOATE [Suspect]
     Active Substance: ZUCLOPENTHIXOL DECANOATE
     Indication: Psychotic disorder
     Dosage: DEPOT
     Route: 030
  11. PENTOXIFYLLINE [Concomitant]
     Active Substance: PENTOXIFYLLINE
     Indication: Thromboangiitis obliterans
     Dosage: 800 MILLIGRAM DAILY; 400MG SUSTAINED RELEASE TWICE DAILY
     Route: 065
  12. CLOPIDOGREL [Concomitant]
     Active Substance: CLOPIDOGREL BISULFATE
     Indication: Antiplatelet therapy
     Dosage: 75 MILLIGRAM DAILY; ONCE DAILY
     Route: 065
  13. ROSUVASTATIN [Concomitant]
     Active Substance: ROSUVASTATIN
     Indication: Product used for unknown indication
     Dosage: 10 MILLIGRAM DAILY; ONCE DAILY
     Route: 065
  14. OMEPRAZOLE [Concomitant]
     Active Substance: OMEPRAZOLE
     Indication: Product used for unknown indication
     Dosage: 20 MILLIGRAM DAILY; ONCE DAILY
     Route: 065

REACTIONS (5)
  - Akathisia [Unknown]
  - Agitation [Unknown]
  - Arrhythmia [Unknown]
  - Intentional product misuse [Unknown]
  - Drug ineffective [Unknown]
